FAERS Safety Report 6606532-X (Version None)
Quarter: 2010Q1

REPORT INFORMATION
  Report Type: 
  Country: None (occurrence: None)
  Receive Date: 20100226
  Receipt Date: 20100224
  Transmission Date: 20100710
  Serious: Yes (Death, Other)
  Sender: FDA-Public Use
  Company Number: PHEH2009US13427

PATIENT
  Sex: Male

DRUGS (14)
  1. GLEEVEC [Suspect]
     Indication: CHRONIC MYELOID LEUKAEMIA
     Dosage: 400 MG, DAILY
     Route: 048
     Dates: start: 20090922, end: 20090924
  2. GLEEVEC [Suspect]
     Indication: MYELOPROLIFERATIVE DISORDER
     Dosage: 400 MG, QD
     Route: 048
     Dates: start: 20090901, end: 20090901
  3. HEMATINIC [Suspect]
     Dosage: UNK, UNK
  4. COUMADIN [Concomitant]
     Dosage: 1 MG, QD
     Route: 048
  5. HYDROCODONE BITARTRATE [Concomitant]
     Dosage: 5/500, PRN
  6. LOPRESSOR [Concomitant]
     Dosage: 25 MG, QD
     Route: 048
  7. NITROBID                                /BRA/ [Concomitant]
     Dosage: 2.5 MG, BID
  8. NITROSTAT [Concomitant]
     Dosage: 0.4MG, PRN
     Route: 060
  9. NORVASC [Concomitant]
     Dosage: 2.5 MG, QD
  10. SYNTHROID [Concomitant]
     Dosage: 50MCG, DAILY
  11. TEKTURNA [Concomitant]
     Dosage: 300 MG, QD
  12. ULTRAM [Concomitant]
     Dosage: 50 MG, QD
  13. VASOTEC [Concomitant]
     Dosage: 20 MG, BID
     Route: 048
  14. VENTOLIN [Concomitant]
     Dosage: UNK, PRN

REACTIONS (32)
  - ANAEMIA [None]
  - ANAL SPHINCTER ATONY [None]
  - ASTHENIA [None]
  - BONE MARROW FAILURE [None]
  - BONE PAIN [None]
  - BREATH SOUNDS ABNORMAL [None]
  - CACHEXIA [None]
  - CHOKING [None]
  - CONFUSIONAL STATE [None]
  - DECREASED APPETITE [None]
  - ECCHYMOSIS [None]
  - FEELING ABNORMAL [None]
  - HAEMATEMESIS [None]
  - HAEMOPTYSIS [None]
  - HALLUCINATION [None]
  - LIMB DISCOMFORT [None]
  - MALIGNANT NEOPLASM PROGRESSION [None]
  - MELAENA [None]
  - NAUSEA [None]
  - NEGATIVE THOUGHTS [None]
  - NIGHTMARE [None]
  - OEDEMA PERIPHERAL [None]
  - OROPHARYNGEAL PAIN [None]
  - OSTEOARTHRITIS [None]
  - OXYGEN SATURATION ABNORMAL [None]
  - PAIN IN EXTREMITY [None]
  - SENSORY DISTURBANCE [None]
  - SINUS DISORDER [None]
  - SLEEP TALKING [None]
  - SUICIDAL IDEATION [None]
  - THROMBOCYTOPENIA [None]
  - WEIGHT DECREASED [None]
